FAERS Safety Report 6529448-6 (Version None)
Quarter: 2010Q1

REPORT INFORMATION
  Report Type: 
  Country: None (occurrence: None)
  Receive Date: 20100107
  Receipt Date: 20091229
  Transmission Date: 20100710
  Serious: Yes (Other)
  Sender: FDA-Public Use
  Company Number: US-AMGEN-QUU382861

PATIENT
  Sex: Female

DRUGS (1)
  1. ENBREL [Suspect]
     Indication: ANKYLOSING SPONDYLITIS
     Route: 058
     Dates: start: 20091111

REACTIONS (5)
  - ANGINA PECTORIS [None]
  - BACK PAIN [None]
  - HYPERTENSION [None]
  - MUSCULOSKELETAL PAIN [None]
  - NECK PAIN [None]
